FAERS Safety Report 10166629 (Version 2)
Quarter: 2014Q2

REPORT INFORMATION
  Report Type: Spontaneous
  Country: GB (occurrence: GB)
  Receive Date: 20140512
  Receipt Date: 20140513
  Transmission Date: 20141212
  Serious: Yes (Other)
  Sender: FDA-Public Use
  Company Number: GB-ROCHE-1399654

PATIENT
  Age: 45 Year
  Sex: Female

DRUGS (4)
  1. XOLAIR [Suspect]
     Indication: ASTHMA
     Route: 065
  2. SERETIDE [Concomitant]
  3. TIOTROPIUM [Concomitant]
  4. THEOPHYLLINE [Concomitant]

REACTIONS (10)
  - Asthma [Unknown]
  - Agitation [Unknown]
  - Restlessness [Unknown]
  - Palpitations [Unknown]
  - Headache [Unknown]
  - Dizziness [Unknown]
  - Mood swings [Unknown]
  - Claustrophobia [Unknown]
  - Feeling abnormal [Unknown]
  - Middle insomnia [Unknown]
